FAERS Safety Report 23133066 (Version 1)
Quarter: 2023Q4

REPORT INFORMATION
  Report Type: Spontaneous
  Country: US (occurrence: US)
  Receive Date: 20231101
  Receipt Date: 20231101
  Transmission Date: 20240110
  Serious: No
  Sender: FDA-Public Use
  Company Number: US-JNJFOC-20231014546

PATIENT
  Age: 75 Year
  Sex: Male

DRUGS (1)
  1. MENS ROGAINE EXTRA STRENGTH [Suspect]
     Active Substance: MINOXIDIL
     Indication: Alopecia
     Dosage: TWICE DAILY
     Route: 061
     Dates: start: 202304

REACTIONS (2)
  - Wrong technique in product usage process [Unknown]
  - Incorrect dose administered [Unknown]

NARRATIVE: CASE EVENT DATE: 20230401
